FAERS Safety Report 19163966 (Version 1)
Quarter: 2021Q2

REPORT INFORMATION
  Report Type: Spontaneous
  Country: US (occurrence: US)
  Receive Date: 20210421
  Receipt Date: 20210421
  Transmission Date: 20210717
  Serious: No
  Sender: FDA-Public Use
  Company Number: US-GLAXOSMITHKLINE-US2021AMR082420

PATIENT
  Sex: Female

DRUGS (3)
  1. FLONASE [Suspect]
     Active Substance: FLUTICASONE PROPIONATE
     Indication: NASAL CONGESTION
  2. FLONASE [Suspect]
     Active Substance: FLUTICASONE PROPIONATE
     Indication: SINUS DISORDER
     Route: 065
  3. FLONASE [Suspect]
     Active Substance: FLUTICASONE PROPIONATE
     Indication: RHINORRHOEA

REACTIONS (1)
  - Drug ineffective [Unknown]
